FAERS Safety Report 21311114 (Version 1)
Quarter: 2022Q3

REPORT INFORMATION
  Report Type: Spontaneous
  Country: US (occurrence: None)
  Receive Date: 20220909
  Receipt Date: 20220909
  Transmission Date: 20221026
  Serious: No
  Sender: FDA-Public Use
  Company Number: US-ARIS GLOBAL-202201-0073

PATIENT
  Age: 79 Year
  Sex: Female
  Weight: 68 kg

DRUGS (10)
  1. OXERVATE [Suspect]
     Active Substance: CENEGERMIN-BKBJ
     Indication: Neurotrophic keratopathy
     Route: 047
     Dates: start: 20220112
  2. ATENOLOL [Concomitant]
     Active Substance: ATENOLOL
  3. PRISTIQ EXTENDED-RELEASE [Concomitant]
     Active Substance: DESVENLAFAXINE SUCCINATE
  4. TRAMADOL [Concomitant]
     Active Substance: TRAMADOL
  5. LYRICA [Concomitant]
     Active Substance: PREGABALIN
  6. VITAMINS [Concomitant]
     Active Substance: VITAMINS
  7. MOTRIN [Concomitant]
     Active Substance: IBUPROFEN
  8. REGENER [Concomitant]
  9. REFRESH FOR DRY EYES [Concomitant]
  10. RETAINE PM [Concomitant]
     Active Substance: MINERAL OIL\PETROLATUM
     Dosage: AT NIGHT.

REACTIONS (2)
  - Panic attack [Not Recovered/Not Resolved]
  - Wrong technique in product usage process [Unknown]

NARRATIVE: CASE EVENT DATE: 20220112
